FAERS Safety Report 7383572-7 (Version None)
Quarter: 2011Q1

REPORT INFORMATION
  Report Type: 
  Country: None (occurrence: None)
  Receive Date: 20110330
  Receipt Date: 20110325
  Transmission Date: 20110831
  Serious: Yes (Hospitalization, Other)
  Sender: FDA-Public Use
  Company Number: DE-PFIZER INC-2011047522

PATIENT
  Age: 70 Year
  Sex: Male

DRUGS (2)
  1. LYRICA [Suspect]
     Indication: NEUROPATHY PERIPHERAL
     Dosage: 750 MG, DAILY
     Route: 048
  2. LYRICA [Suspect]
     Indication: NEURALGIA
     Dosage: 300-400 MG, DAILY
     Route: 048
     Dates: start: 20040101

REACTIONS (3)
  - CONFUSIONAL STATE [None]
  - MENTAL DISORDER DUE TO A GENERAL MEDICAL CONDITION [None]
  - HALLUCINATION, VISUAL [None]
